FAERS Safety Report 22089835 (Version 3)
Quarter: 2023Q2

REPORT INFORMATION
  Report Type: Report from Study
  Country: JP (occurrence: JP)
  Receive Date: 20230313
  Receipt Date: 20230407
  Transmission Date: 20230722
  Serious: Yes (Death)
  Sender: FDA-Public Use
  Company Number: JP-SERVIER-S22010783

PATIENT
  Age: 65 Year
  Sex: Male
  Weight: 65 kg

DRUGS (20)
  1. ONIVYDE [Suspect]
     Active Substance: IRINOTECAN HYDROCHLORIDE
     Indication: Pancreatic carcinoma
     Dosage: 70 MG/M2
     Route: 065
     Dates: start: 20220207, end: 20220207
  2. ONIVYDE [Suspect]
     Active Substance: IRINOTECAN HYDROCHLORIDE
     Dosage: 70 MG/M2
     Route: 065
     Dates: start: 20220222, end: 20220222
  3. ONIVYDE [Suspect]
     Active Substance: IRINOTECAN HYDROCHLORIDE
     Dosage: 70 MG/M2
     Route: 065
     Dates: start: 20220310, end: 20220310
  4. ONIVYDE [Suspect]
     Active Substance: IRINOTECAN HYDROCHLORIDE
     Dosage: 70 MG/M2
     Route: 065
     Dates: start: 20220324, end: 20220324
  5. ONIVYDE [Suspect]
     Active Substance: IRINOTECAN HYDROCHLORIDE
     Dosage: 70 MG/M2
     Route: 065
     Dates: start: 20220407, end: 20220407
  6. ONIVYDE [Suspect]
     Active Substance: IRINOTECAN HYDROCHLORIDE
     Dosage: 70 MG/M2
     Route: 065
     Dates: start: 20220421, end: 20220421
  7. LEVOLEUCOVORIN CALCIUM [Concomitant]
     Active Substance: LEVOLEUCOVORIN CALCIUM
     Indication: Pancreatic carcinoma
     Dosage: 200 MG/M2
     Route: 065
     Dates: start: 20220207, end: 20220207
  8. LEVOLEUCOVORIN CALCIUM [Concomitant]
     Active Substance: LEVOLEUCOVORIN CALCIUM
     Dosage: 200 MG/M2
     Route: 065
     Dates: start: 20220222, end: 20220222
  9. LEVOLEUCOVORIN CALCIUM [Concomitant]
     Active Substance: LEVOLEUCOVORIN CALCIUM
     Dosage: 200 MG/M2
     Route: 065
     Dates: start: 20220310, end: 20220310
  10. LEVOLEUCOVORIN CALCIUM [Concomitant]
     Active Substance: LEVOLEUCOVORIN CALCIUM
     Dosage: 200 MG/M2
     Route: 065
     Dates: start: 20220324, end: 20220324
  11. LEVOLEUCOVORIN CALCIUM [Concomitant]
     Active Substance: LEVOLEUCOVORIN CALCIUM
     Dosage: 200 MG/M2
     Route: 065
     Dates: start: 20220407, end: 20220407
  12. LEVOLEUCOVORIN CALCIUM [Concomitant]
     Active Substance: LEVOLEUCOVORIN CALCIUM
     Dosage: 200 MG/M2
     Route: 065
     Dates: start: 20220421, end: 20220421
  13. FLUOROURACIL [Concomitant]
     Active Substance: FLUOROURACIL
     Indication: Pancreatic carcinoma
     Dosage: 2374 MG/M2
     Route: 065
     Dates: start: 20220207, end: 20220209
  14. FLUOROURACIL [Concomitant]
     Active Substance: FLUOROURACIL
     Dosage: 2374 MG/M2
     Route: 065
     Dates: start: 20220222, end: 20220224
  15. FLUOROURACIL [Concomitant]
     Active Substance: FLUOROURACIL
     Dosage: 2374 MG/M2
     Route: 065
     Dates: start: 20220310, end: 20220312
  16. FLUOROURACIL [Concomitant]
     Active Substance: FLUOROURACIL
     Dosage: 2374 MG/M2
     Route: 065
     Dates: start: 20220324, end: 20220326
  17. FLUOROURACIL [Concomitant]
     Active Substance: FLUOROURACIL
     Dosage: 2400 MG/M2
     Route: 065
     Dates: start: 20220407, end: 20220409
  18. FLUOROURACIL [Concomitant]
     Active Substance: FLUOROURACIL
     Dosage: 2400 MG/M2
     Route: 065
     Dates: start: 20220421, end: 20220423
  19. PALONOSETRON HYDROCHLORIDE [Concomitant]
     Active Substance: PALONOSETRON HYDROCHLORIDE
     Indication: Chemotherapy side effect prophylaxis
     Dosage: UNKNOWN
     Route: 065
  20. DEXAMETHASONE [Concomitant]
     Active Substance: DEXAMETHASONE
     Indication: Chemotherapy side effect prophylaxis
     Route: 065

REACTIONS (1)
  - Malignant neoplasm progression [Fatal]

NARRATIVE: CASE EVENT DATE: 20220512
